FAERS Safety Report 15606027 (Version 1)
Quarter: 2018Q4

REPORT INFORMATION
  Report Type: Report from Study
  Country: US (occurrence: US)
  Receive Date: 20181112
  Receipt Date: 20181112
  Transmission Date: 20190205
  Serious: Yes (Death)
  Sender: FDA-Public Use
  Company Number: US-BAUSCH-BL-2018-001809

PATIENT
  Age: 51 Year
  Sex: Female

DRUGS (2)
  1. XENAZINE [Suspect]
     Active Substance: TETRABENAZINE
     Indication: HUNTINGTON^S DISEASE
     Route: 048
     Dates: start: 20161102, end: 201801
  2. XENAZINE [Suspect]
     Active Substance: TETRABENAZINE
     Route: 048
     Dates: start: 20180120, end: 20180120

REACTIONS (3)
  - Product availability issue [Recovered/Resolved]
  - Death [Fatal]
  - Therapy cessation [Recovered/Resolved]

NARRATIVE: CASE EVENT DATE: 201801
